FAERS Safety Report 9639129 (Version 1)
Quarter: 2013Q4

REPORT INFORMATION
  Report Type: Spontaneous
  Country: FR (occurrence: FR)
  Receive Date: 20131022
  Receipt Date: 20131022
  Transmission Date: 20140711
  Serious: Yes (Hospitalization)
  Sender: FDA-Public Use
  Company Number: FR-ROCHE-1291972

PATIENT
  Age: 40 Year
  Sex: Female
  Weight: 35.6 kg

DRUGS (2)
  1. VALIUM [Suspect]
     Indication: PSYCHOTIC DISORDER
     Dosage: 10 MG
     Route: 048
     Dates: start: 20130930, end: 20131001
  2. RISPERDAL [Suspect]
     Indication: PSYCHOTIC DISORDER
     Dosage: 2 MG
     Route: 048
     Dates: start: 20130919, end: 20130930

REACTIONS (1)
  - Hepatocellular injury [Recovering/Resolving]
